FAERS Safety Report 7464130-2 (Version None)
Quarter: 2011Q2

REPORT INFORMATION
  Report Type: 
  Country: None (occurrence: None)
  Receive Date: 20110506
  Receipt Date: 20101013
  Transmission Date: 20111010
  Serious: No
  Sender: FDA-Public Use
  Company Number: US-AMGEN INC.-TCS439542

PATIENT
  Age: 62 Year
  Sex: Female
  Weight: 70.748 kg

DRUGS (9)
  1. ENBREL [Suspect]
     Indication: RHEUMATOID ARTHRITIS
     Dosage: 50 MG, QWK
     Route: 058
     Dates: start: 20100310
  2. EVOXAC [Concomitant]
  3. IODINE [Concomitant]
  4. METHOTREXATE [Concomitant]
  5. LOVAZA [Concomitant]
  6. LEVOXYL [Concomitant]
  7. PROTONIX [Concomitant]
  8. SIMVASTATIN [Concomitant]
  9. ELAVIL [Concomitant]

REACTIONS (3)
  - SCIATICA [None]
  - NERVE ROOT COMPRESSION [None]
  - INTERVERTEBRAL DISC PROTRUSION [None]
